FAERS Safety Report 7743907-X (Version None)
Quarter: 2011Q3

REPORT INFORMATION
  Report Type: 
  Country: None (occurrence: None)
  Receive Date: 20110912
  Receipt Date: 20110831
  Transmission Date: 20111222
  Serious: Yes (Congenital Anomaly)
  Sender: FDA-Public Use
  Company Number: TH-VIIV HEALTHCARE LIMITED-B0632790A

PATIENT
  Sex: Female
  Weight: 6.2 kg

DRUGS (2)
  1. NEVIRAPINE [Suspect]
     Indication: ANTIVIRAL PROPHYLAXIS
     Dosage: 6MG PER DAY
     Route: 048
     Dates: start: 20090614, end: 20090616
  2. ZIDOVUDINE [Suspect]
     Indication: ANTIVIRAL PROPHYLAXIS
     Dosage: 24MG FOUR TIMES PER DAY
     Route: 048
     Dates: start: 20090614, end: 20090621

REACTIONS (2)
  - CARDIAC FAILURE CONGESTIVE [None]
  - ATRIAL SEPTAL DEFECT [None]
